FAERS Safety Report 9162752 (Version 2)
Quarter: 2013Q2

REPORT INFORMATION
  Report Type: Spontaneous
  Country: JP (occurrence: JP)
  Receive Date: 20130314
  Receipt Date: 20130408
  Transmission Date: 20140414
  Serious: Yes (Hospitalization)
  Sender: FDA-Public Use
  Company Number: JP-SANOFI-AVENTIS-2013SA025165

PATIENT
  Age: 76 Year
  Sex: Male
  Weight: 62 kg

DRUGS (14)
  1. ELPLAT [Suspect]
     Indication: PRODUCT USED FOR UNKNOWN INDICATION
     Route: 041
     Dates: start: 20121112, end: 20121112
  2. 5-FU [Suspect]
     Indication: PRODUCT USED FOR UNKNOWN INDICATION
     Route: 040
     Dates: start: 20121112, end: 20121112
  3. 5-FU [Suspect]
     Indication: PRODUCT USED FOR UNKNOWN INDICATION
     Route: 041
     Dates: start: 20121112, end: 20121112
  4. CALCIUM LEVOFOLINATE [Concomitant]
     Dates: start: 20121112, end: 20121112
  5. GRANISETRON HYDROCHLORIDE [Concomitant]
     Dates: start: 20121112, end: 20121112
  6. DEXART [Concomitant]
     Dates: start: 20121112, end: 20121112
  7. AMLODIPINE [Concomitant]
  8. DIART [Concomitant]
  9. FERRIC SODIUM CITRATE/FERROUS FUMARATE/FERROUS GLUCONATE [Concomitant]
  10. ITOROL [Concomitant]
  11. CLOSTRIDIUM BUTYRICUM [Concomitant]
  12. AMINO ACIDS [Concomitant]
     Dates: start: 20121114, end: 20121114
  13. WARFARIN POTASSIUM [Concomitant]
  14. COVERSYL [Concomitant]

REACTIONS (1)
  - Hyperammonaemia [Recovered/Resolved]
